FAERS Safety Report 25752162 (Version 1)
Quarter: 2025Q3

REPORT INFORMATION
  Report Type: Spontaneous
  Country: US (occurrence: None)
  Receive Date: 20250902
  Receipt Date: 20250902
  Transmission Date: 20251021
  Serious: Yes (Death)
  Sender: FDA-CTU
  Company Number: None

PATIENT
  Age: 57 Year
  Sex: Male

DRUGS (3)
  1. NEXAVAR [Suspect]
     Active Substance: SORAFENIB
  2. YERVOY [Concomitant]
     Active Substance: IPILIMUMAB
  3. OPDIVO [Concomitant]
     Active Substance: NIVOLUMAB

REACTIONS (1)
  - Death [None]
